FAERS Safety Report 7433520-6 (Version None)
Quarter: 2011Q2

REPORT INFORMATION
  Report Type: 
  Country: None (occurrence: None)
  Receive Date: 20110422
  Receipt Date: 20110322
  Transmission Date: 20111010
  Serious: No
  Sender: FDA-Public Use
  Company Number: US-MUTUAL PHARMACEUTICAL COMPANY, INC.-CLHC20110009

PATIENT
  Sex: Female

DRUGS (3)
  1. SYNTHROID [Concomitant]
     Indication: THYROID CANCER
     Route: 048
  2. COLCHICINE [Suspect]
     Indication: OSTEOARTHRITIS
     Route: 048
     Dates: start: 20101001, end: 20110301
  3. TRIAMPERENE/HCTZ 37.5 MG/25 MG [Concomitant]
     Indication: HYPERTENSION
     Route: 048

REACTIONS (10)
  - URINARY RETENTION [None]
  - DYSPEPSIA [None]
  - PHOTOSENSITIVITY REACTION [None]
  - VISION BLURRED [None]
  - MYALGIA [None]
  - OFF LABEL USE [None]
  - POLLAKIURIA [None]
  - MUSCLE SPASMS [None]
  - DIARRHOEA [None]
  - FATIGUE [None]
